FAERS Safety Report 22333898 (Version 1)
Quarter: 2023Q2

REPORT INFORMATION
  Report Type: Spontaneous
  Country: US (occurrence: US)
  Receive Date: 20230517
  Receipt Date: 20230517
  Transmission Date: 20230721
  Serious: No
  Sender: FDA-Public Use
  Company Number: US-AIMMUNE THERAPEUTICS, INC.-2022AIMT02838

PATIENT

DRUGS (12)
  1. PALFORZIA [Suspect]
     Active Substance: PEANUT
     Indication: Food allergy
     Dosage: IDE (0.5-6MG), ONCE
     Route: 048
     Dates: start: 20220808, end: 20220808
  2. PALFORZIA [Suspect]
     Active Substance: PEANUT
     Dosage: 3 MG, 1X/DAY
     Route: 048
     Dates: start: 20220811
  3. PALFORZIA [Suspect]
     Active Substance: PEANUT
     Dosage: 3 MG, ONCE, LAST DOSE PRIOR TO INITIAL OCCURENCE OF EVENTS
     Route: 048
  4. PALFORZIA [Suspect]
     Active Substance: PEANUT
     Dosage: 80MG, 1X/DAY
     Route: 048
     Dates: start: 20221129, end: 2022
  5. PALFORZIA [Suspect]
     Active Substance: PEANUT
     Dosage: 80MG, ONCE, LAST DOSE PRIOR TO EVENT OF VOMITING
     Route: 048
     Dates: start: 2022, end: 2022
  6. PALFORZIA [Suspect]
     Active Substance: PEANUT
     Dosage: 40MG, 1X/DAY, DOSE DECREASED
     Route: 048
  7. PALFORZIA [Suspect]
     Active Substance: PEANUT
     Dosage: 20MG, 1X/DAY, DOSE DECREASED
     Route: 048
     Dates: start: 20221219, end: 20230113
  8. VENTOLIN [Concomitant]
     Active Substance: ALBUTEROL SULFATE
     Indication: Product used for unknown indication
     Dosage: USED AS NEEDED
  9. EPINEPHRINE [Concomitant]
     Active Substance: EPINEPHRINE
     Indication: Product used for unknown indication
     Dosage: USED AS NEEDED
  10. VITAMINS [Concomitant]
     Active Substance: VITAMINS
     Indication: Product used for unknown indication
  11. SKYTROFA [Concomitant]
     Active Substance: LONAPEGSOMATROPIN-TCGD
     Indication: Growth hormone deficiency
     Dosage: 1 INJECTION PER WEEK
  12. BENADRYL [Concomitant]
     Active Substance: DIPHENHYDRAMINE HYDROCHLORIDE
     Indication: Product used for unknown indication
     Dosage: USED AS NEEDED

REACTIONS (3)
  - Abdominal pain upper [Unknown]
  - Abdominal discomfort [Unknown]
  - Vomiting [Unknown]
